FAERS Safety Report 7898974-X (Version None)
Quarter: 2011Q4

REPORT INFORMATION
  Report Type: 
  Country: None (occurrence: None)
  Receive Date: 20111107
  Receipt Date: 20111021
  Transmission Date: 20120403
  Serious: Yes (Other)
  Sender: FDA-Public Use
  Company Number: PHHY2011JP91220

PATIENT
  Age: 42 Year
  Sex: Female

DRUGS (4)
  1. BUCILLAMINE [Concomitant]
  2. CYCLOSPORINE [Suspect]
     Indication: PSORIASIS
     Route: 048
  3. SULFASALAZINE [Concomitant]
  4. METHOTREXATE [Concomitant]

REACTIONS (10)
  - JAW CYST [None]
  - ARTHROPATHY [None]
  - PSORIASIS [None]
  - ERYTHEMA [None]
  - PSORIATIC ARTHROPATHY [None]
  - ARTHRALGIA [None]
  - JOINT SWELLING [None]
  - PYREXIA [None]
  - HEREDITARY ANGIOEDEMA [None]
  - SKIN DISORDER [None]
